FAERS Safety Report 13246047 (Version 4)
Quarter: 2017Q1

REPORT INFORMATION
  Report Type: Spontaneous
  Country: US (occurrence: US)
  Receive Date: 20170217
  Receipt Date: 20170322
  Transmission Date: 20170428
  Serious: Yes (Hospitalization)
  Sender: FDA-Public Use
  Company Number: US-UNITED THERAPEUTICS-UNT-2017-002051

PATIENT
  Age: 66 Year
  Sex: Female
  Weight: 113.83 kg

DRUGS (4)
  1. REMODULIN [Suspect]
     Active Substance: TREPROSTINIL
     Dosage: 0.032 ?G/KG, CONTINUING
     Route: 041
  2. REMODULIN [Suspect]
     Active Substance: TREPROSTINIL
     Indication: PULMONARY HYPERTENSION
     Dosage: 0.030 ?G/KG, CONTINUING
     Route: 041
     Dates: start: 20160706
  3. REMODULIN [Suspect]
     Active Substance: TREPROSTINIL
     Dosage: 0.04 ?G/KG, CONTINUING
     Route: 041
  4. SILDENAFIL CITRATE. [Concomitant]
     Active Substance: SILDENAFIL CITRATE
     Indication: PRODUCT USED FOR UNKNOWN INDICATION

REACTIONS (6)
  - Pulmonary arterial hypertension [Unknown]
  - Fluid overload [Unknown]
  - Atrial flutter [Unknown]
  - Chronic respiratory failure [Unknown]
  - Cardioversion [Unknown]
  - Supraventricular tachycardia [Unknown]

NARRATIVE: CASE EVENT DATE: 20170210
